FAERS Safety Report 5909734-0 (Version None)
Quarter: 2008Q4

REPORT INFORMATION
  Report Type: 
  Country: None (occurrence: None)
  Receive Date: 20081002
  Receipt Date: 20080917
  Transmission Date: 20090506
  Serious: Yes (Disabling)
  Sender: FDA-Public Use
  Company Number: 2008AL010768

PATIENT
  Age: 57 Year
  Sex: Female

DRUGS (9)
  1. GABAPENTIN [Suspect]
     Indication: NEURALGIA
     Dosage: 400 MG; QD; PO
     Route: 048
  2. ELOXATIN [Concomitant]
  3. FLUOROURACIL [Concomitant]
  4. FOLIC ACID [Concomitant]
  5. VITAMIN B6 [Concomitant]
  6. PREMIQUE [Concomitant]
  7. FEXOFENADINE [Concomitant]
  8. HORMONE REPLACEMENT THERAPY [Concomitant]
  9. MULTI-VITAMINS [Concomitant]

REACTIONS (10)
  - AREFLEXIA [None]
  - AUTONOMIC NEUROPATHY [None]
  - BACK PAIN [None]
  - CONDITION AGGRAVATED [None]
  - DEPRESSION [None]
  - IMPAIRED GASTRIC EMPTYING [None]
  - MUSCLE ATROPHY [None]
  - PERIARTHRITIS [None]
  - PERIPHERAL SENSORY NEUROPATHY [None]
  - SENSORY LOSS [None]
